FAERS Safety Report 24250271 (Version 1)
Quarter: 2024Q3

REPORT INFORMATION
  Report Type: Spontaneous
  Country: US (occurrence: US)
  Receive Date: 20240826
  Receipt Date: 20240826
  Transmission Date: 20241016
  Serious: No
  Sender: SANOFI AVENTIS
  Company Number: US-SA-SAC20240820000083

PATIENT
  Sex: Male
  Weight: 73.482 kg

DRUGS (10)
  1. DUPIXENT [Suspect]
     Active Substance: DUPILUMAB
     Indication: Rhinitis allergic
     Dosage: 300 MG, QOW
     Route: 058
  2. TYLENOL [Concomitant]
     Active Substance: ACETAMINOPHEN
  3. VITAMINS NOS [Concomitant]
     Active Substance: VITAMINS
  4. ALEVE [Concomitant]
     Active Substance: NAPROXEN SODIUM
  5. FISH OIL [Concomitant]
     Active Substance: FISH OIL
  6. CALCIUM [Concomitant]
     Active Substance: CALCIUM
  7. MINERALS\VITAMINS [Concomitant]
     Active Substance: MINERALS\VITAMINS
  8. BAYER ASPIRIN [Concomitant]
     Active Substance: ASPIRIN
  9. ECOTRIN [Concomitant]
     Active Substance: ASPIRIN
  10. D1000 [Concomitant]

REACTIONS (1)
  - Product use in unapproved indication [Unknown]
